FAERS Safety Report 6416304-7 (Version None)
Quarter: 2009Q4

REPORT INFORMATION
  Report Type: 
  Country: None (occurrence: None)
  Receive Date: 20091022
  Receipt Date: 20091013
  Transmission Date: 20100525
  Serious: Yes (Hospitalization)
  Sender: FDA-Public Use
  Company Number: 2009SP030580

PATIENT
  Age: 7 Year
  Sex: Female
  Weight: 19.9 kg

DRUGS (2)
  1. PEG-INTRON [Suspect]
     Indication: BONE SARCOMA
     Dates: start: 20090710, end: 20091002
  2. DOXORUBICIN HCL [Suspect]
     Indication: BONE SARCOMA
     Dates: start: 20081128, end: 20090627

REACTIONS (2)
  - MITRAL VALVE INCOMPETENCE [None]
  - PERICARDIAL EFFUSION [None]
